FAERS Safety Report 18158584 (Version 1)
Quarter: 2020Q3

REPORT INFORMATION
  Report Type: Spontaneous
  Country: DE (occurrence: DE)
  Receive Date: 20200817
  Receipt Date: 20200817
  Transmission Date: 20201103
  Serious: Yes (Life-Threatening, Hospitalization, Other)
  Sender: FDA-Public Use
  Company Number: DE-SA-2020SA213882

PATIENT

DRUGS (9)
  1. MAGNESIUMSULFAT [Concomitant]
     Dosage: 1 DF, QD, 0?0?0?1
  2. CLOPIDOGREL BISULFATE. [Suspect]
     Active Substance: CLOPIDOGREL BISULFATE
     Dosage: 75 MG, QD, 1?0?0?0
     Route: 065
  3. FERRO?SANOL DUODENAL [Concomitant]
     Active Substance: FERROUS GLYCINE SULFATE
     Dosage: 1 DF, QD, 1?0?0?0
  4. ACETYLSALICYLIC ACID [Suspect]
     Active Substance: ASPIRIN
     Dosage: 100 MG, QD, 1?0?0?0
     Route: 065
  5. FLORADIX MIT EISEN [Concomitant]
     Dosage: 1.5 MG, Q8H, 1?1?1?0
  6. PANTOPRAZOLE [Concomitant]
     Active Substance: PANTOPRAZOLE
     Dosage: 40 MG, Q12H, 1?0?1?0
  7. BISOPROLOL [Concomitant]
     Active Substance: BISOPROLOL
     Dosage: 5 MG, Q12H, 1?0?1?0
  8. TORASEMID [Concomitant]
     Active Substance: TORSEMIDE
     Dosage: 5 MG, QD,  1?0?0?0
  9. KALIUM VERLA [Concomitant]
     Active Substance: POTASSIUM CITRATE
     Dosage: 1 DF, QD, 1?0?0?0

REACTIONS (9)
  - Haematochezia [Unknown]
  - Pallor [Unknown]
  - Fall [Unknown]
  - General physical health deterioration [Unknown]
  - Dizziness [Unknown]
  - Anaemia [Unknown]
  - Face injury [Unknown]
  - Wound [Unknown]
  - Haematemesis [Unknown]
